FAERS Safety Report 5201438-5 (Version None)
Quarter: 2006Q4

REPORT INFORMATION
  Report Type: 
  Country: None (occurrence: None)
  Receive Date: 20061004
  Receipt Date: 20060525
  Transmission Date: 20070319
  Serious: No
  Sender: FDA-Public Use
  Company Number: US200604000971

PATIENT
  Age: 67 Year
  Sex: Female

DRUGS (4)
  1. ALIMTA [Suspect]
     Indication: LUNG NEOPLASM MALIGNANT
     Dosage: 500 MG/M2, OTHER, INTRAVENOUS
     Route: 042
     Dates: start: 20051001
  2. CYANOCOBALAMIN [Concomitant]
  3. FOLIC ACID [Concomitant]
  4. DEXAMETHASONE TAB [Concomitant]

REACTIONS (2)
  - LACRIMATION INCREASED [None]
  - PERIORBITAL OEDEMA [None]
